FAERS Safety Report 5036743-9 (Version None)
Quarter: 2006Q2

REPORT INFORMATION
  Report Type: 
  Country: None (occurrence: None)
  Receive Date: 20060601
  Receipt Date: 20060303
  Transmission Date: 20061013
  Serious: No
  Sender: FDA-Public Use
  Company Number: USA041081641

PATIENT
  Age: 80 Year
  Sex: Female
  Weight: 67.7 kg

DRUGS (8)
  1. CYMBALTA [Suspect]
     Indication: ANXIETY
     Dosage: SEE IMAGE
     Dates: start: 20040101
  2. CYMBALTA [Suspect]
     Indication: ANXIETY
     Dosage: SEE IMAGE
     Dates: start: 20040101
  3. CYMBALTA [Suspect]
     Indication: ANXIETY
     Dosage: SEE IMAGE
     Dates: start: 20041018
  4. ANTIBIOTIC (ANTIBIOTIC) [Concomitant]
  5. XANAX (ALPRAZOLAM DUM) [Concomitant]
  6. NORVASC [Concomitant]
  7. RANITIDINE [Concomitant]
  8. VITAMINS [Concomitant]

REACTIONS (4)
  - ANXIETY [None]
  - HEADACHE [None]
  - HYPERTENSION [None]
  - INITIAL INSOMNIA [None]
